FAERS Safety Report 5324936-2 (Version None)
Quarter: 2007Q2

REPORT INFORMATION
  Report Type: 
  Country: None (occurrence: None)
  Receive Date: 20070515
  Receipt Date: 20070502
  Transmission Date: 20071010
  Serious: Yes (Hospitalization)
  Sender: FDA-Public Use
  Company Number: US-AMGEN-US218152

PATIENT
  Sex: Female
  Weight: 81 kg

DRUGS (3)
  1. PROCRIT [Suspect]
     Indication: RENAL FAILURE ACUTE
     Route: 058
     Dates: start: 20070228, end: 20070402
  2. PLAVIX [Concomitant]
     Route: 048
     Dates: start: 20070321
  3. PLETAL [Concomitant]
     Route: 048
     Dates: start: 20070321, end: 20070326

REACTIONS (1)
  - MENINGIOMA [None]
